FAERS Safety Report 17300910 (Version 2)
Quarter: 2020Q2

REPORT INFORMATION
  Report Type: Spontaneous
  Country: US (occurrence: US)
  Receive Date: 20200122
  Receipt Date: 20200424
  Transmission Date: 20200713
  Serious: No
  Sender: FDA-Public Use
  Company Number: US-PFIZER INC-2020026179

PATIENT
  Age: 59 Year
  Sex: Female

DRUGS (1)
  1. XELJANZ XR [Suspect]
     Active Substance: TOFACITINIB CITRATE
     Indication: RHEUMATOID ARTHRITIS
     Dosage: 11 MG, DAILY
     Route: 048
     Dates: start: 20190701

REACTIONS (9)
  - Sinus disorder [Not Recovered/Not Resolved]
  - Product dose omission [Unknown]
  - Dyspepsia [Unknown]
  - Pre-existing condition improved [Unknown]
  - Hepatic enzyme increased [Unknown]
  - Nasopharyngitis [Not Recovered/Not Resolved]
  - Respiratory disorder [Unknown]
  - Fatigue [Unknown]
  - Therapeutic response unexpected [Unknown]
